FAERS Safety Report 7883375-0 (Version None)
Quarter: 2011Q4

REPORT INFORMATION
  Report Type: 
  Country: None (occurrence: None)
  Receive Date: 20111102
  Receipt Date: 20111102
  Transmission Date: 20120403
  Serious: Yes (Life-Threatening, Hospitalization, Other)
  Sender: FDA-Public Use
  Company Number: None

PATIENT
  Age: 84 Year
  Sex: Male
  Weight: 88.45 kg

DRUGS (1)
  1. CYMBALTA [Suspect]
     Indication: DEPRESSION
     Dosage: 60MG
     Route: 048
     Dates: start: 20110915, end: 20110930

REACTIONS (18)
  - RETCHING [None]
  - PERIORBITAL HAEMATOMA [None]
  - SUICIDAL IDEATION [None]
  - DEMENTIA ALZHEIMER'S TYPE [None]
  - MASS [None]
  - FALL [None]
  - MENTAL STATUS CHANGES [None]
  - DRUG WITHDRAWAL SYNDROME [None]
  - RENAL FAILURE ACUTE [None]
  - DISORIENTATION [None]
  - AGITATION [None]
  - VOMITING [None]
  - DEPRESSION [None]
  - CONFUSIONAL STATE [None]
  - NAUSEA [None]
  - DRUG INEFFECTIVE [None]
  - CONDITION AGGRAVATED [None]
  - ATRIAL FIBRILLATION [None]
